FAERS Safety Report 20331333 (Version 2)
Quarter: 2022Q1

REPORT INFORMATION
  Report Type: Spontaneous
  Country: JP (occurrence: JP)
  Receive Date: 20220113
  Receipt Date: 20220218
  Transmission Date: 20220423
  Serious: Yes (Death)
  Sender: FDA-Public Use
  Company Number: JP-BAYER-2022A005166

PATIENT
  Age: 85 Year
  Sex: Female

DRUGS (17)
  1. ADEMPAS [Suspect]
     Active Substance: RIOCIGUAT
     Indication: Pulmonary hypertension
     Dosage: 2.5 MG, TID
     Route: 048
     Dates: end: 20210927
  2. MAGNESIUM OXIDE [Concomitant]
     Active Substance: MAGNESIUM OXIDE
     Dosage: DAILY DOSE 990 MG
     Route: 048
     Dates: start: 20180118, end: 20210927
  3. WARFARIN [Concomitant]
     Active Substance: WARFARIN
     Dosage: DAILY DOSE 1.5 MG
     Route: 048
     Dates: start: 20160421, end: 20210927
  4. ELOBIXIBAT [Concomitant]
     Active Substance: ELOBIXIBAT
     Dosage: DAILY DOSE 10 MG
     Route: 048
     Dates: start: 20190807, end: 20210927
  5. BENSERAZIDE HYDROCHLORIDE\LEVODOPA [Concomitant]
     Active Substance: BENSERAZIDE HYDROCHLORIDE\LEVODOPA
     Dosage: DAILY DOSE 4 DF
     Route: 048
     Dates: start: 20190424, end: 20210927
  6. SELEGILINE HYDROCHLORIDE [Concomitant]
     Active Substance: SELEGILINE HYDROCHLORIDE
     Dosage: DAILY DOSE 5 MG
     Route: 048
     Dates: start: 20190424, end: 20210927
  7. ZONISAMIDE [Concomitant]
     Active Substance: ZONISAMIDE
     Dosage: DAILY DOSE 25 MG
     Route: 048
     Dates: start: 20190424, end: 20210927
  8. ISTRADEFYLLINE [Concomitant]
     Active Substance: ISTRADEFYLLINE
     Dosage: DAILY DOSE 40 MG
     Route: 048
     Dates: start: 20190424, end: 20210927
  9. ALLOPURINOL [Concomitant]
     Active Substance: ALLOPURINOL
     Dosage: 100 MG, QD
     Route: 048
     Dates: start: 20190424, end: 20210927
  10. VALSARTAN [Concomitant]
     Active Substance: VALSARTAN
     Dosage: 40 MG, QD
     Route: 048
     Dates: start: 20190424, end: 20210927
  11. LANSOPRAZOLE [Concomitant]
     Active Substance: LANSOPRAZOLE
     Dosage: 15 MG, QD
     Route: 048
     Dates: start: 20190424, end: 20210927
  12. RIVOTRIL [Concomitant]
     Active Substance: CLONAZEPAM
     Dosage: 0.5 MG, QD
     Route: 048
     Dates: start: 20190424, end: 20210927
  13. ROZEREM [Concomitant]
     Active Substance: RAMELTEON
     Dosage: 8 MG, QD
     Route: 048
     Dates: start: 20190828, end: 20210927
  14. BELSOMRA [Concomitant]
     Active Substance: SUVOREXANT
     Dosage: 15 MG, QD
     Route: 048
     Dates: start: 20200122, end: 20210927
  15. DIPHENIDOL HYDROCHLORIDE [Concomitant]
     Active Substance: DIPHENIDOL HYDROCHLORIDE
     Dosage: DAILY DOSE 75 MG
     Route: 048
     Dates: start: 20210421, end: 20210927
  16. NEUPRO [Concomitant]
     Active Substance: ROTIGOTINE
     Dosage: UNK
     Route: 062
     Dates: start: 20190424, end: 20210927
  17. EXELON PATCH [Concomitant]
     Active Substance: RIVASTIGMINE
     Dosage: UNK
     Route: 062
     Dates: start: 20190724, end: 20210927

REACTIONS (2)
  - Death [Fatal]
  - Incorrect dose administered [None]
